FAERS Safety Report 9031600 (Version 2)
Quarter: 2018Q4

REPORT INFORMATION
  Report Type: Spontaneous
  Country: FR (occurrence: FR)
  Receive Date: 20130124
  Receipt Date: 20181207
  Transmission Date: 20190205
  Serious: Yes (Life-Threatening, Hospitalization)
  Sender: FDA-Public Use
  Company Number: FR-ROCHE-1182282

PATIENT
  Age: 69 Year
  Sex: Male

DRUGS (15)
  1. ACTISKENAN [Suspect]
     Active Substance: MORPHINE SULFATE
     Route: 065
     Dates: start: 20120930
  2. OMEPRAZOLE. [Concomitant]
     Active Substance: OMEPRAZOLE
     Route: 065
  3. MIANSERINE [Concomitant]
     Active Substance: MIANSERIN HYDROCHLORIDE
     Route: 065
  4. ACTISKENAN [Suspect]
     Active Substance: MORPHINE SULFATE
     Indication: PRODUCT USED FOR UNKNOWN INDICATION
     Dosage: 30 MG AT 30 MG
     Route: 048
     Dates: start: 20120926, end: 20120926
  5. VALIUM [Suspect]
     Active Substance: DIAZEPAM
     Indication: PROPHYLAXIS
     Route: 048
     Dates: start: 20120926, end: 20120926
  6. ACTISKENAN [Suspect]
     Active Substance: MORPHINE SULFATE
     Dosage: UNK
     Route: 065
     Dates: start: 20120927, end: 20120930
  7. ACTISKENAN [Suspect]
     Active Substance: MORPHINE SULFATE
     Dosage: 5 MG AT 10 MG
     Route: 065
     Dates: start: 20120926
  8. LESCOL [Concomitant]
     Active Substance: FLUVASTATIN SODIUM
     Route: 065
  9. KARDEGIC [Concomitant]
     Active Substance: ASPIRIN DL-LYSINE
     Route: 065
  10. VERAPAMIL [Concomitant]
     Active Substance: VERAPAMIL HYDROCHLORIDE
     Route: 065
  11. ACTISKENAN [Suspect]
     Active Substance: MORPHINE SULFATE
     Route: 065
     Dates: start: 20120927
  12. ACTISKENAN [Suspect]
     Active Substance: MORPHINE SULFATE
     Route: 065
     Dates: start: 20120929
  13. DEROXAT [Concomitant]
     Active Substance: PAROXETINE HYDROCHLORIDE
     Route: 065
  14. VALIUM [Suspect]
     Active Substance: DIAZEPAM
     Dosage: THERAPY ON 27,28,29,30SEP12
     Route: 048
     Dates: start: 20120927, end: 20121001
  15. ACTISKENAN [Suspect]
     Active Substance: MORPHINE SULFATE
     Route: 065
     Dates: start: 20121001

REACTIONS (4)
  - Bradypnoea [Recovered/Resolved]
  - Miosis [Unknown]
  - Off label use [Unknown]
  - Somnolence [Recovered/Resolved]

NARRATIVE: CASE EVENT DATE: 20121001
